FAERS Safety Report 21548332 (Version 5)
Quarter: 2023Q1

REPORT INFORMATION
  Report Type: Spontaneous
  Country: LT (occurrence: LT)
  Receive Date: 20221103
  Receipt Date: 20230320
  Transmission Date: 20230417
  Serious: Yes (Other)
  Sender: FDA-Public Use
  Company Number: LT-MYLANLABS-2022M1120075

PATIENT
  Age: 13 Year
  Sex: Female

DRUGS (7)
  1. SERTRALINE [Suspect]
     Active Substance: SERTRALINE HYDROCHLORIDE
     Indication: Depression
     Dosage: 25 MILLIGRAM, QD
     Route: 065
     Dates: start: 2020, end: 2020
  2. SERTRALINE [Suspect]
     Active Substance: SERTRALINE HYDROCHLORIDE
     Indication: Obsessive-compulsive disorder
     Dosage: UNK
     Route: 065
  3. FLUVOXAMINE [Suspect]
     Active Substance: FLUVOXAMINE
     Indication: Depression
     Dosage: 25 MILLIGRAM, QD
     Route: 065
     Dates: start: 2020, end: 2020
  4. FLUVOXAMINE [Suspect]
     Active Substance: FLUVOXAMINE
     Indication: Obsessive-compulsive disorder
     Dosage: 200 MILLIGRAM, QD
     Route: 065
     Dates: start: 2020, end: 2020
  5. TIAPRIDE [Suspect]
     Active Substance: TIAPRIDE
     Indication: Tic
     Dosage: BID, 50MG MORN, 100 MG EVENING
     Route: 065
     Dates: start: 2020
  6. RISPERIDONE [Concomitant]
     Active Substance: RISPERIDONE
     Indication: Tic
     Dosage: UNK, QD, 0.5 MG/P
     Route: 065
     Dates: start: 2020, end: 2021
  7. TIAPRIDE [Concomitant]
     Active Substance: TIAPRIDE
     Indication: Tic
     Dosage: 150 MILLIGRAM, QD, 150 MG/DAY
     Route: 065

REACTIONS (4)
  - Eye haemorrhage [Recovered/Resolved]
  - Epistaxis [Recovered/Resolved]
  - Drug ineffective [Recovered/Resolved]
  - Therapeutic product effect incomplete [Unknown]

NARRATIVE: CASE EVENT DATE: 20200101
